FAERS Safety Report 4452839-4 (Version None)
Quarter: 2004Q3

REPORT INFORMATION
  Report Type: 
  Country: None (occurrence: None)
  Receive Date: 20040817
  Receipt Date: 20031006
  Transmission Date: 20050211
  Serious: Yes (Hospitalization)
  Sender: FDA-Public Use
  Company Number: SYNAGIS-04265

PATIENT
  Sex: Male

DRUGS (1)
  1. SYNAGIS [Suspect]
     Dosage: 225 MG, 1 IN 30 D, INTRAMUSCULAR
     Route: 030
     Dates: start: 20031003

REACTIONS (2)
  - OEDEMA PERIPHERAL [None]
  - URTICARIA [None]
